FAERS Safety Report 11745728 (Version 1)
Quarter: 2015Q4

REPORT INFORMATION
  Report Type: Spontaneous
  Country: US (occurrence: None)
  Receive Date: 20151116
  Receipt Date: 20151116
  Transmission Date: 20160304
  Serious: Yes (Other)
  Sender: FDA-Public Use
  Company Number: None

PATIENT
  Age: 50 Year
  Sex: Female
  Weight: 86.18 kg

DRUGS (1)
  1. HYOSCYAMINE .125 MG [Suspect]
     Active Substance: HYOSCYAMINE
     Indication: DIARRHOEA
     Dosage: 3 PILLS
     Route: 048
     Dates: start: 20131101, end: 20151115

REACTIONS (2)
  - Vomiting [None]
  - Dysphagia [None]

NARRATIVE: CASE EVENT DATE: 20150827
